FAERS Safety Report 9638270 (Version 3)
Quarter: 2014Q2

REPORT INFORMATION
  Report Type: Spontaneous
  Country: US (occurrence: US)
  Receive Date: 20131022
  Receipt Date: 20140506
  Transmission Date: 20141212
  Serious: Yes (Hospitalization, Other)
  Sender: FDA-Public Use
  Company Number: US-PFIZER INC-2013300537

PATIENT
  Age: 67 Year
  Sex: Male
  Weight: 74.83 kg

DRUGS (2)
  1. VFEND [Suspect]
     Indication: FUNGAL INFECTION
     Dosage: UNK
     Route: 042
     Dates: start: 20131017
  2. VFEND [Suspect]
     Indication: ASPERGILLUS INFECTION
     Dosage: 200 MG, 2X/DAY
     Route: 048
     Dates: start: 2013

REACTIONS (3)
  - Bacterial infection [Unknown]
  - Hallucination [Recovered/Resolved]
  - Gallbladder disorder [Unknown]
